FAERS Safety Report 5678307-X (Version None)
Quarter: 2008Q1

REPORT INFORMATION
  Report Type: 
  Country: None (occurrence: None)
  Receive Date: 20080321
  Receipt Date: 20080307
  Transmission Date: 20080703
  Serious: Yes (Hospitalization)
  Sender: FDA-Public Use
  Company Number: 2008000548

PATIENT
  Age: 60 Year
  Sex: Female

DRUGS (1)
  1. TARCEVA [Suspect]
     Indication: LUNG NEOPLASM MALIGNANT
     Dosage: (150 MG), 0RAL
     Route: 048
     Dates: start: 20080226

REACTIONS (3)
  - DECUBITUS ULCER [None]
  - HYPOTENSION [None]
  - LOSS OF CONSCIOUSNESS [None]
